FAERS Safety Report 5381883-8 (Version None)
Quarter: 2007Q2

REPORT INFORMATION
  Report Type: 
  Country: None (occurrence: None)
  Receive Date: 20070629
  Receipt Date: 20070307
  Transmission Date: 20071010
  Serious: No
  Sender: FDA-Public Use
  Company Number: PHEH2007US02845

PATIENT
  Age: 33 Year
  Sex: Female
  Weight: 50.8 kg

DRUGS (1)
  1. EXJADE [Suspect]
     Indication: MYELODYSPLASTIC SYNDROME
     Dosage: 1000 MG, QD, ORAL
     Route: 048
     Dates: start: 20060221, end: 20060321

REACTIONS (5)
  - ALOPECIA [None]
  - DENTAL CARIES [None]
  - DIARRHOEA [None]
  - STOMACH DISCOMFORT [None]
  - TOOTH EXTRACTION [None]
